FAERS Safety Report 16616345 (Version 1)
Quarter: 2019Q3

REPORT INFORMATION
  Report Type: Spontaneous
  Country: US (occurrence: US)
  Receive Date: 20190723
  Receipt Date: 20190723
  Transmission Date: 20191004
  Serious: Yes (Hospitalization)
  Sender: FDA-Public Use
  Company Number: US-HQ SPECIALTY-US-2019INT000178

PATIENT

DRUGS (6)
  1. FLUOROURACIL. [Suspect]
     Active Substance: FLUOROURACIL
     Indication: OROPHARYNGEAL CANCER
     Dosage: CYCLE 1, 750 MG/M2?4 DAYS
  2. CISPLATIN. [Suspect]
     Active Substance: CISPLATIN
     Indication: OROPHARYNGEAL CANCER
     Dosage: CYCLE 1, 100 MG/ M2 ON DAY 1
  3. CISPLATIN. [Suspect]
     Active Substance: CISPLATIN
     Dosage: UNK, CYCLE 2
  4. DOCETAXEL. [Suspect]
     Active Substance: DOCETAXEL
     Dosage: UNK, CYCLE 2
  5. DOCETAXEL. [Suspect]
     Active Substance: DOCETAXEL
     Indication: OROPHARYNGEAL CANCER
     Dosage: CYCLE 1, 75 MG/M2
  6. FLUOROURACIL. [Suspect]
     Active Substance: FLUOROURACIL
     Dosage: UNK, CYCLE 2

REACTIONS (2)
  - Neutropenia [Unknown]
  - Cholangitis [Unknown]
